FAERS Safety Report 16943235 (Version 1)
Quarter: 2019Q4

REPORT INFORMATION
  Report Type: Report from Study
  Country: US (occurrence: US)
  Receive Date: 20191021
  Receipt Date: 20191021
  Transmission Date: 20200122
  Serious: Yes (Hospitalization, Other)
  Sender: FDA-Public Use
  Company Number: US-SA-2018SA392070

PATIENT
  Age: 37 Year
  Sex: Female

DRUGS (4)
  1. CLONAZEPAM. [Suspect]
     Active Substance: CLONAZEPAM
     Indication: SEIZURE
     Dosage: 1 MG, BID
     Route: 042
  2. OXYBUTYNIN. [Suspect]
     Active Substance: OXYBUTYNIN CHLORIDE
     Dosage: 5 MG, BID
     Route: 065
  3. ALEMTUZUMAB [Suspect]
     Active Substance: ALEMTUZUMAB
     Indication: MULTIPLE SCLEROSIS
     Dosage: 12 MG, QD
     Route: 041
     Dates: start: 20181210, end: 20181214
  4. OXYBUTYNIN. [Suspect]
     Active Substance: OXYBUTYNIN CHLORIDE
     Dosage: 5 MG, QD
     Route: 065

REACTIONS (23)
  - Back pain [Not Recovered/Not Resolved]
  - Confusional state [Unknown]
  - Brain oedema [Unknown]
  - Blood glucose decreased [Recovered/Resolved]
  - Nausea [Recovered/Resolved]
  - Acne [Not Recovered/Not Resolved]
  - Headache [Recovered/Resolved]
  - Tremor [Recovered/Resolved]
  - Rash [Recovered/Resolved]
  - Heart rate increased [Not Recovered/Not Resolved]
  - Memory impairment [Unknown]
  - Feeling abnormal [Unknown]
  - Neurogenic bladder [Unknown]
  - Condition aggravated [Unknown]
  - Staphylococcal infection [Not Recovered/Not Resolved]
  - Incoherent [Recovered/Resolved]
  - Unresponsive to stimuli [Recovered/Resolved]
  - Chromaturia [Recovered/Resolved]
  - Blood potassium decreased [Unknown]
  - CD4 lymphocytes decreased [Unknown]
  - Dyscalculia [Unknown]
  - Generalised tonic-clonic seizure [Recovered/Resolved]
  - Dehydration [Not Recovered/Not Resolved]

NARRATIVE: CASE EVENT DATE: 20181210
